FAERS Safety Report 8287081-2 (Version None)
Quarter: 2012Q2

REPORT INFORMATION
  Report Type: 
  Country: None (occurrence: None)
  Receive Date: 20120416
  Receipt Date: 20110509
  Transmission Date: 20120825
  Serious: No
  Sender: FDA-Public Use
  Company Number: US-ALLERGAN-1106328US

PATIENT
  Sex: Female

DRUGS (1)
  1. ZYMAXID [Suspect]
     Indication: POSTOPERATIVE CARE
     Route: 047

REACTIONS (2)
  - DIZZINESS [None]
  - ABNORMAL SENSATION IN EYE [None]
